FAERS Safety Report 17894396 (Version 1)
Quarter: 2020Q2

REPORT INFORMATION
  Report Type: Spontaneous
  Country: CA (occurrence: CA)
  Receive Date: 20200615
  Receipt Date: 20200615
  Transmission Date: 20200714
  Serious: Yes (Hospitalization)
  Sender: FDA-Public Use
  Company Number: CA-RECORDATI RARE DISEASES-2085826

PATIENT
  Age: 39 Year
  Sex: Female
  Weight: 69 kg

DRUGS (3)
  1. SIGNIFOR [Suspect]
     Active Substance: PASIREOTIDE DIASPARTATE
     Indication: HYPOGLYCAEMIA
     Route: 058
     Dates: start: 20200311, end: 20200404
  2. CONTRAVE ENTERAL NUTRITION [Concomitant]
     Dates: start: 20200225
  3. SIGNIFOR [Suspect]
     Active Substance: PASIREOTIDE DIASPARTATE
     Indication: HYPERINSULINAEMIA
     Route: 058
     Dates: start: 20200311, end: 20200404

REACTIONS (8)
  - Diarrhoea [Recovered/Resolved]
  - Feeding disorder [Unknown]
  - Gastrointestinal disorder [Unknown]
  - Headache [Recovered/Resolved]
  - Nausea [Recovered/Resolved]
  - Malnutrition [Unknown]
  - Abdominal pain [Recovered/Resolved]
  - Drug intolerance [Unknown]

NARRATIVE: CASE EVENT DATE: 20200311
